FAERS Safety Report 6258422-2 (Version None)
Quarter: 2009Q3

REPORT INFORMATION
  Report Type: 
  Country: None (occurrence: None)
  Receive Date: 20090701
  Receipt Date: 20081114
  Transmission Date: 20100115
  Serious: Yes (Other)
  Sender: FDA-Public Use
  Company Number: 597700

PATIENT
  Age: 51 Year
  Sex: Male
  Weight: 68 kg

DRUGS (6)
  1. KLONOPIN [Suspect]
     Indication: ANXIETY
     Dosage: 1 MG 3 PER DAY ORAL
     Route: 048
     Dates: start: 19950101
  2. OXYCODONE HCL [Concomitant]
  3. SOMA [Concomitant]
  4. ATENOLOL [Concomitant]
  5. ASPIRIN [Concomitant]
  6. NITRO (NITROGLYCERIN) [Concomitant]

REACTIONS (3)
  - CHEST PAIN [None]
  - CONFUSIONAL STATE [None]
  - DRUG INEFFECTIVE [None]
